FAERS Safety Report 5594741-0 (Version None)
Quarter: 2008Q1

REPORT INFORMATION
  Report Type: 
  Country: None (occurrence: None)
  Receive Date: 20080117
  Receipt Date: 20080107
  Transmission Date: 20080703
  Serious: Yes (Other)
  Sender: FDA-Public Use
  Company Number: DE-GENENTECH-253436

PATIENT
  Sex: Male
  Weight: 88 kg

DRUGS (1)
  1. MABTHERA [Suspect]
     Indication: IDIOPATHIC THROMBOCYTOPENIC PURPURA
     Dosage: 375 MG/M2, 1/WEEK
     Route: 042
     Dates: start: 20061127, end: 20061219

REACTIONS (3)
  - BACK PAIN [None]
  - COLITIS ULCERATIVE [None]
  - GASTRIC POLYPS [None]
